FAERS Safety Report 6674216-8 (Version None)
Quarter: 2010Q2

REPORT INFORMATION
  Report Type: 
  Country: None (occurrence: None)
  Receive Date: 20100409
  Receipt Date: 20091218
  Transmission Date: 20101027
  Serious: Yes (Hospitalization)
  Sender: FDA-Public Use
  Company Number: US-JNJFOC-20090706161

PATIENT
  Age: 83 Year
  Sex: Female

DRUGS (14)
  1. LEVAQUIN [Suspect]
     Indication: URINARY TRACT INFECTION
     Route: 065
  2. REVLIMID [Suspect]
     Indication: MULTIPLE MYELOMA
     Route: 048
  3. REVLIMID [Suspect]
     Route: 048
  4. INSULIN [Concomitant]
     Route: 065
  5. ATENOLOL [Concomitant]
     Route: 065
  6. MAGNESIUM [Concomitant]
     Route: 065
  7. CALCIUM [Concomitant]
     Route: 065
  8. VITAMIN D [Concomitant]
     Route: 065
  9. FISH OIL [Concomitant]
     Route: 065
  10. LASIX [Concomitant]
     Route: 065
  11. NOVOLOG [Concomitant]
     Dosage: 70/30, 23 UNITS AM, 60 UNITS IN THE EVENING
     Route: 065
  12. MULTI-VITAMINS [Concomitant]
     Route: 065
  13. DORIPENEM HYDRATE [Concomitant]
     Route: 042
  14. INTRAVENOUS FLUIDS, NOS [Concomitant]
     Route: 042

REACTIONS (8)
  - ABASIA [None]
  - ASTHENIA [None]
  - CONFUSIONAL STATE [None]
  - DEHYDRATION [None]
  - EATING DISORDER [None]
  - LETHARGY [None]
  - LOBAR PNEUMONIA [None]
  - UROSEPSIS [None]
